FAERS Safety Report 7964753-8 (Version None)
Quarter: 2011Q4

REPORT INFORMATION
  Report Type: 
  Country: None (occurrence: None)
  Receive Date: 20111208
  Receipt Date: 20111205
  Transmission Date: 20120403
  Serious: Yes (Hospitalization, Other)
  Sender: FDA-Public Use
  Company Number: US-PFIZER INC-2010169005

PATIENT
  Sex: Female

DRUGS (9)
  1. REQUIP [Concomitant]
     Indication: RESTLESS LEGS SYNDROME
     Dosage: UNK
     Dates: start: 20000101
  2. PROTONIX [Concomitant]
     Indication: GASTROOESOPHAGEAL REFLUX DISEASE
     Dosage: UNK
     Dates: start: 19970101
  3. PREDNISONE [Concomitant]
     Indication: RHEUMATOID ARTHRITIS
     Dosage: UNK
     Dates: start: 19950101
  4. CHANTIX [Suspect]
     Indication: SMOKING CESSATION THERAPY
     Dosage: 1 MG, UNK
     Route: 048
     Dates: start: 20080506, end: 20080519
  5. FOLIC ACID [Concomitant]
     Indication: RHEUMATOID ARTHRITIS
     Dosage: UNK
     Dates: start: 19950101
  6. RESTORIL [Concomitant]
     Indication: INSOMNIA
     Dosage: UNK
     Dates: start: 19970101
  7. CARAFATE [Concomitant]
     Indication: GASTRIC ULCER
     Dosage: UNK
     Dates: start: 19970101
  8. DILAUDID [Concomitant]
     Indication: PAIN
     Dosage: UNK
     Dates: start: 20050101
  9. FENTANYL [Concomitant]
     Indication: BACK PAIN
     Dosage: UNK
     Dates: start: 20050101

REACTIONS (8)
  - INTENTIONAL OVERDOSE [None]
  - ABNORMAL BEHAVIOUR [None]
  - MENTAL DISORDER [None]
  - SUICIDE ATTEMPT [None]
  - ANXIETY [None]
  - AGGRESSION [None]
  - DEPRESSION [None]
  - EMOTIONAL DISTRESS [None]
